FAERS Safety Report 20506801 (Version 2)
Quarter: 2022Q1

REPORT INFORMATION
  Report Type: Spontaneous
  Country: US (occurrence: US)
  Receive Date: 20220223
  Receipt Date: 20220318
  Transmission Date: 20220424
  Serious: Yes (Hospitalization)
  Sender: FDA-Public Use
  Company Number: US-BIOVITRUM-2022US02417

PATIENT
  Age: 2 Year
  Sex: Female

DRUGS (1)
  1. SYNAGIS [Suspect]
     Active Substance: PALIVIZUMAB
     Indication: Premature baby
     Route: 030
     Dates: start: 20220208

REACTIONS (4)
  - Dehydration [Unknown]
  - Hypernatraemia [Unknown]
  - Vomiting [Unknown]
  - Viral infection [Unknown]

NARRATIVE: CASE EVENT DATE: 20220208
